FAERS Safety Report 6379450-2 (Version None)
Quarter: 2009Q3

REPORT INFORMATION
  Report Type: 
  Country: None (occurrence: None)
  Receive Date: 20090928
  Receipt Date: 20090922
  Transmission Date: 20100115
  Serious: Yes (Death, Other)
  Sender: FDA-Public Use
  Company Number: B0586744A

PATIENT
  Sex: Female
  Weight: 75 kg

DRUGS (4)
  1. TYVERB [Suspect]
     Route: 048
     Dates: start: 20080730
  2. XELODA [Concomitant]
     Route: 048
     Dates: start: 20080730, end: 20080812
  3. SINTROM [Concomitant]
     Route: 048
  4. ATENOLOL [Concomitant]
     Dosage: 25MG PER DAY
     Route: 048

REACTIONS (3)
  - BREAST CANCER METASTATIC [None]
  - HEPATIC ENZYME INCREASED [None]
  - HEPATITIS [None]
